FAERS Safety Report 11881752 (Version 2)
Quarter: 2016Q1

REPORT INFORMATION
  Report Type: Spontaneous
  Country: US (occurrence: US)
  Receive Date: 20151231
  Receipt Date: 20160316
  Transmission Date: 20160526
  Serious: No
  Sender: FDA-Public Use
  Company Number: US-009507513-1512USA013450

PATIENT
  Sex: Female

DRUGS (1)
  1. JANUVIA [Suspect]
     Active Substance: SITAGLIPTIN PHOSPHATE
     Indication: DIABETES MELLITUS
     Dosage: UNK
     Route: 048

REACTIONS (10)
  - Headache [Unknown]
  - Abdominal pain upper [Unknown]
  - Eye pain [Unknown]
  - Gastric infection [Unknown]
  - Arthralgia [Unknown]
  - Chest pain [Unknown]
  - Pollakiuria [Unknown]
  - Sinusitis [Unknown]
  - Pain in extremity [Unknown]
  - Ear infection [Unknown]
